APPROVED DRUG PRODUCT: EXPAREL
Active Ingredient: BUPIVACAINE
Strength: 133MG/10ML (13.3MG/ML)
Dosage Form/Route: INJECTABLE, LIPOSOMAL;INJECTION
Application: N022496 | Product #001
Applicant: PACIRA PHARMACEUTICALS INC
Approved: Oct 28, 2011 | RLD: Yes | RS: Yes | Type: RX

PATENTS:
Patent 11452691 | Expires: Jan 22, 2041
Patent 12318483 | Expires: Jul 2, 2044
Patent 11819575 | Expires: Jan 22, 2041
Patent 11033495 | Expires: Jan 22, 2041
Patent 12226610 | Expires: Feb 2, 2043
Patent 12226610 | Expires: Feb 2, 2043
Patent 12226610 | Expires: Feb 2, 2043
Patent 12144890 | Expires: Jan 22, 2041
Patent 11179336 | Expires: Jan 22, 2041
Patent 11426348 | Expires: Jan 22, 2041
Patent 12296047 | Expires: Jan 22, 2041
Patent 12370142 | Expires: Jul 2, 2044
Patent 12251468 | Expires: Jul 2, 2044
Patent 11357727 | Expires: Jan 22, 2041
Patent 11311486 | Expires: Jan 22, 2041
Patent 11278494 | Expires: Jan 22, 2041
Patent 11304904 | Expires: Jan 22, 2041
Patent 11819574 | Expires: Jan 22, 2041
Patent 11925706 | Expires: Jan 22, 2041
Patent 11931459 | Expires: Mar 17, 2042
Patent 11931459 | Expires: Mar 17, 2042
Patent 11918565 | Expires: Feb 2, 2043
Patent 12151024 | Expires: Jan 22, 2041
Patent 12156940 | Expires: Jul 2, 2044

EXCLUSIVITY:
Code: I-929 | Date: Nov 9, 2026